FAERS Safety Report 9705944 (Version 2)
Quarter: 2013Q4

REPORT INFORMATION
  Report Type: Spontaneous
  Country: NO (occurrence: NO)
  Receive Date: 20131122
  Receipt Date: 20131209
  Transmission Date: 20140711
  Serious: Yes (Death, Hospitalization, Other)
  Sender: FDA-Public Use
  Company Number: NO-ASTRAZENECA-2013SE85464

PATIENT
  Age: 843 Month
  Sex: Male

DRUGS (6)
  1. CASODEX [Suspect]
     Indication: PROSTATE CANCER
     Route: 048
     Dates: start: 20121104
  2. CASODEX [Suspect]
     Indication: PROSTATE CANCER
     Route: 048
     Dates: start: 20121215, end: 20130521
  3. SCHERIPROCT [Concomitant]
     Indication: PROSTATITIS
  4. COZAAR COMP [Concomitant]
     Indication: HYPERTENSION
     Dosage: 100MG/12.5MG
     Route: 048
     Dates: start: 200811
  5. KONYAC ROOT POWDER [Concomitant]
     Indication: WEIGHT DECREASED
     Dosage: STARTING THIS AUTUMN UNKNOWN DOSAGE
     Route: 048
  6. NASONEX [Concomitant]
     Indication: NASAL CONGESTION
     Dosage: ON AND OFF

REACTIONS (4)
  - Renal failure [Unknown]
  - Multi-organ failure [Fatal]
  - Hepatic failure [Fatal]
  - Adverse event [Unknown]
